FAERS Safety Report 7265265-X (Version None)
Quarter: 2011Q1

REPORT INFORMATION
  Report Type: 
  Country: None (occurrence: None)
  Receive Date: 20110131
  Receipt Date: 20110126
  Transmission Date: 20110831
  Serious: Yes (Hospitalization, Other)
  Sender: FDA-Public Use
  Company Number: US-PFIZER INC-2010129652

PATIENT
  Sex: Female
  Weight: 49.887 kg

DRUGS (7)
  1. AMLODIPINE [Concomitant]
     Indication: HYPERTENSION
     Dosage: 2.5 MG, 1X/DAY
     Route: 048
  2. GEMFIBROZIL [Concomitant]
     Indication: BLOOD CHOLESTEROL ABNORMAL
     Dosage: 600 MG, 2X/DAY
     Route: 048
  3. LIPITOR [Suspect]
     Indication: BLOOD CHOLESTEROL ABNORMAL
     Dosage: 80 MG, 1X/DAY
     Route: 048
     Dates: start: 20080101
  4. GEMFIBROZIL [Concomitant]
     Indication: BLOOD TRIGLYCERIDES
  5. FIORICET [Concomitant]
     Indication: MIGRAINE
     Dosage: [BUTALBITAL 50MG]/[ACETAMINOPHEN325MG]/[CAFFEINE 40MG], 4X/DAY
     Route: 048
  6. ZOLPIDEM [Concomitant]
     Indication: SLEEP DISORDER
     Dosage: 10 MG, 1X/DAY
     Route: 048
  7. ACETAMINOPHEN AND HYDROCODONE BITARTRATE [Concomitant]
     Indication: PAIN
     Dosage: [HYDROCODONE BITARTRATE 10MG]/[ACETAMINOPHEN 500MG],UNK
     Route: 048

REACTIONS (3)
  - MEDICATION RESIDUE [None]
  - GASTRIC OPERATION [None]
  - SHORT-BOWEL SYNDROME [None]
